FAERS Safety Report 5694838-0 (Version None)
Quarter: 2008Q2

REPORT INFORMATION
  Report Type: 
  Country: None (occurrence: None)
  Receive Date: 20080404
  Receipt Date: 20080328
  Transmission Date: 20081010
  Serious: Yes (Other)
  Sender: FDA-Public Use
  Company Number: GB-AVENTIS-200812867GDDC

PATIENT
  Age: 33 Year
  Sex: Female

DRUGS (2)
  1. TELFAST                            /01314201/ [Suspect]
     Indication: ANGIOEDEMA
     Route: 048
     Dates: start: 20010401, end: 20030301
  2. MONTELUKAST SODIUM [Concomitant]
     Indication: ANGIOEDEMA
     Route: 048
     Dates: start: 20010401, end: 20030301

REACTIONS (2)
  - PRE-ECLAMPSIA [None]
  - PREMATURE BABY [None]
